FAERS Safety Report 4628121-9 (Version None)
Quarter: 2005Q2

REPORT INFORMATION
  Report Type: 
  Country: None (occurrence: None)
  Receive Date: 20050406
  Receipt Date: 20050329
  Transmission Date: 20051028
  Serious: Yes (Life-Threatening)
  Sender: FDA-Public Use
  Company Number: GB-GLAXOSMITHKLINE-B0376112A

PATIENT
  Age: 75 Year
  Sex: Male
  Weight: 85 kg

DRUGS (5)
  1. CEFUROXIME SODIUM [Suspect]
     Indication: SURGERY
     Route: 042
     Dates: start: 20050302, end: 20050302
  2. ATRACURIUM [Suspect]
     Indication: SURGERY
     Dosage: 40MG SINGLE DOSE
     Route: 042
     Dates: start: 20050302, end: 20050302
  3. PROPOFOL [Concomitant]
     Route: 065
  4. FENTANYL CITRATE [Concomitant]
     Route: 065
  5. BUPIVACAINE [Concomitant]
     Route: 065

REACTIONS (3)
  - ANAPHYLACTIC REACTION [None]
  - HYPOTENSION [None]
  - TRYPTASE INCREASED [None]
